FAERS Safety Report 6539142-3 (Version None)
Quarter: 2010Q1

REPORT INFORMATION
  Report Type: 
  Country: None (occurrence: None)
  Receive Date: 20100115
  Receipt Date: 20091230
  Transmission Date: 20100710
  Serious: Yes (Death)
  Sender: FDA-Public Use
  Company Number: GB-SANOFI-AVENTIS-2009SA011828

PATIENT
  Sex: Female

DRUGS (8)
  1. MILRINONE [Suspect]
     Indication: VENTRICULAR FAILURE
     Dosage: 0.4MG/KG/MIN.
     Route: 065
     Dates: start: 20091130, end: 20091130
  2. ADRENALINE [Suspect]
     Dosage: 0.4MG/KG/MIN
     Route: 065
     Dates: start: 20091130, end: 20091130
  3. DOBUTAMINE HCL [Suspect]
     Indication: VENTRICULAR FAILURE
     Dosage: 5.5MG/KG/MIN
     Route: 065
     Dates: start: 20091130, end: 20091130
  4. NORADRENALINE [Suspect]
     Indication: VENTRICULAR DYSFUNCTION
     Dosage: 0.3MG/KG/MIN
     Route: 065
     Dates: start: 20091130, end: 20091130
  5. SILDENAFIL [Suspect]
     Indication: PULMONARY HYPERTENSION
     Dosage: 1 MG/HR
     Route: 051
     Dates: start: 20091130, end: 20091130
  6. VASOPRESSIN INJECTION [Suspect]
     Indication: VENTRICULAR DYSFUNCTION
     Dosage: 2.4 I.U/HR.
     Route: 065
     Dates: start: 20091130, end: 20091130
  7. GELOFUSINE /AUS/ [Concomitant]
     Route: 065
     Dates: start: 20091130, end: 20091130
  8. ALTEPLASE [Concomitant]
     Indication: THROMBOSIS
     Route: 065
     Dates: start: 20091130, end: 20091130

REACTIONS (1)
  - DEATH [None]
